FAERS Safety Report 7043959-9 (Version None)
Quarter: 2010Q4

REPORT INFORMATION
  Report Type: 
  Country: None (occurrence: None)
  Receive Date: 20101008
  Receipt Date: 20101008
  Transmission Date: 20110411
  Serious: Yes (Other)
  Sender: FDA-Public Use
  Company Number: None

PATIENT
  Sex: Female
  Weight: 81.6475 kg

DRUGS (2)
  1. PRISTIQ [Suspect]
     Indication: MAJOR DEPRESSION
     Dosage: 1 DAILY PO
     Route: 048
     Dates: start: 20101009, end: 20101009
  2. PROZAC [Concomitant]

REACTIONS (3)
  - ERYTHEMA [None]
  - PAPULE [None]
  - PRURITUS [None]
